FAERS Safety Report 4891886-5 (Version None)
Quarter: 2006Q1

REPORT INFORMATION
  Report Type: 
  Country: None (occurrence: None)
  Receive Date: 20060124
  Receipt Date: 20060112
  Transmission Date: 20060701
  Serious: Yes (Hospitalization, Other)
  Sender: FDA-Public Use
  Company Number: 200514873BCC

PATIENT
  Age: 81 Year
  Sex: Female
  Weight: 57.6068 kg

DRUGS (6)
  1. ALEVE (CAPLET) [Suspect]
     Indication: PAIN
     Dosage: SEE IMAGE
     Route: 048
     Dates: start: 20041201
  2. ALEVE (CAPLET) [Suspect]
     Indication: SCIATICA
     Dosage: SEE IMAGE
     Route: 048
     Dates: start: 20041201
  3. ALEVE (CAPLET) [Suspect]
     Indication: PAIN
     Dosage: SEE IMAGE
     Route: 048
     Dates: start: 20051122
  4. ALEVE (CAPLET) [Suspect]
     Indication: SCIATICA
     Dosage: SEE IMAGE
     Route: 048
     Dates: start: 20051122
  5. DILTIA XT [Concomitant]
  6. ST. JOSEPH'S ASPIRIN [Concomitant]

REACTIONS (10)
  - ABASIA [None]
  - ASTHENIA [None]
  - FATIGUE [None]
  - GASTRIC ULCER HAEMORRHAGE [None]
  - HAEMOGLOBIN DECREASED [None]
  - HAEMORRHAGE [None]
  - HEAD TITUBATION [None]
  - MYOCARDIAL INFARCTION [None]
  - SPEECH DISORDER [None]
  - THINKING ABNORMAL [None]
